FAERS Safety Report 9088742 (Version 5)
Quarter: 2013Q2

REPORT INFORMATION
  Report Type: Spontaneous
  Country: US (occurrence: US)
  Receive Date: 20130131
  Receipt Date: 20130507
  Transmission Date: 20140414
  Serious: Yes (Death, Hospitalization, Other)
  Sender: FDA-Public Use
  Company Number: US-ASTELLAS-2013US000956

PATIENT
  Age: 78 Year
  Sex: Male
  Weight: 92 kg

DRUGS (3)
  1. XTANDI [Suspect]
     Indication: PROSTATE CANCER
     Dosage: 160 MG, UID/QD
     Route: 048
     Dates: start: 201210, end: 20130101
  2. VANCOMYCIN [Suspect]
     Indication: RESPIRATORY FAILURE
     Dosage: UNK
     Route: 042
     Dates: start: 201301
  3. VANCOMYCIN [Suspect]
     Indication: SEPTIC SHOCK

REACTIONS (19)
  - Respiratory failure [Fatal]
  - Ileus [Unknown]
  - Respiratory distress [Unknown]
  - Consciousness fluctuating [Unknown]
  - Cardiac failure congestive [Unknown]
  - Pulmonary embolism [Unknown]
  - Renal failure [Fatal]
  - Cardiac failure [Fatal]
  - Blood pressure decreased [Unknown]
  - Pleural effusion [Unknown]
  - Hyponatraemia [Recovering/Resolving]
  - Septic shock [Unknown]
  - Influenza [Unknown]
  - Simplex virus test positive [Unknown]
  - Pneumonia klebsiella [Unknown]
  - Nausea [Recovered/Resolved with Sequelae]
  - Decreased appetite [Unknown]
  - Diarrhoea [Unknown]
  - Fall [Unknown]
